FAERS Safety Report 8421547-7 (Version None)
Quarter: 2012Q2

REPORT INFORMATION
  Report Type: 
  Country: None (occurrence: None)
  Receive Date: 20120608
  Receipt Date: 20120525
  Transmission Date: 20120825
  Serious: No
  Sender: FDA-Public Use
  Company Number: US-B.I. PHARMACEUTICALS,INC./RIDGEFIELD-2012-BP-07508BP

PATIENT
  Sex: Female
  Weight: 67.4 kg

DRUGS (1)
  1. PRADAXA [Suspect]
     Indication: ATRIAL FIBRILLATION
     Dosage: 75 MG
     Route: 048
     Dates: start: 20120406, end: 20120422

REACTIONS (3)
  - DIZZINESS [None]
  - ARTHRALGIA [None]
  - ATAXIA [None]
